FAERS Safety Report 12581130 (Version 1)
Quarter: 2016Q3

REPORT INFORMATION
  Report Type: Spontaneous
  Country: US (occurrence: US)
  Receive Date: 20160721
  Receipt Date: 20160721
  Transmission Date: 20161109
  Serious: Yes (Other)
  Sender: FDA-Public Use
  Company Number: US-GLAXOSMITHKLINE-US2016104380

PATIENT
  Age: 88 Year
  Sex: Female

DRUGS (5)
  1. LOTEMAX [Concomitant]
     Active Substance: LOTEPREDNOL ETABONATE
  2. RESTASIS [Concomitant]
     Active Substance: CYCLOSPORINE
  3. LUMIGAN [Concomitant]
     Active Substance: BIMATOPROST
  4. VENTOLIN HFA [Suspect]
     Active Substance: ALBUTEROL SULFATE
     Dosage: 6 PUFF(S), QID
     Route: 055
     Dates: start: 201606
  5. VENTOLIN HFA [Suspect]
     Active Substance: ALBUTEROL SULFATE
     Indication: DYSPNOEA
     Dosage: 2 PUFF(S), PRN
     Route: 055
     Dates: end: 201606

REACTIONS (4)
  - Glaucoma [Unknown]
  - Cough [Not Recovered/Not Resolved]
  - Overdose [Unknown]
  - Intraocular pressure increased [Not Recovered/Not Resolved]

NARRATIVE: CASE EVENT DATE: 201606
